FAERS Safety Report 24557618 (Version 1)
Quarter: 2024Q4

REPORT INFORMATION
  Report Type: Spontaneous
  Country: GB (occurrence: GB)
  Receive Date: 20241028
  Receipt Date: 20241028
  Transmission Date: 20250115
  Serious: Yes (Other)
  Sender: MYLAN
  Company Number: GB-MHRA-TPP13439418C10664895YC1729524451400

PATIENT
  Age: 77 Year
  Sex: Male
  Weight: 59 kg

DRUGS (12)
  1. AMLODIPINE [Suspect]
     Active Substance: AMLODIPINE BESYLATE
     Indication: Product used for unknown indication
     Dosage: 5 MILLIGRAM, QD (TAKE ONE DAILY)
     Route: 065
     Dates: start: 20241014
  2. HYDROCORTISONE [Concomitant]
     Active Substance: HYDROCORTISONE
     Indication: Ill-defined disorder
     Dosage: UNK, BID (APPLY TWICE DAILY FOR 1-2 WEEK  )
     Route: 065
     Dates: start: 20240925, end: 20241002
  3. Adjuvanted quadrivalent influenza vaccine [Concomitant]
     Indication: Ill-defined disorder
     Dosage: UNK (USE AS DIRECTED)
     Route: 065
     Dates: start: 20241012, end: 20241013
  4. CARBOMER [Concomitant]
     Active Substance: CARBOMER
     Indication: Ill-defined disorder
     Dosage: UNK, QID (APPLY FOUR TIMES A DAY TO THE AFFECTED EYE)
     Route: 065
     Dates: start: 20170601
  5. ASPIRIN [Concomitant]
     Active Substance: ASPIRIN
     Indication: Ill-defined disorder
     Dosage: 1 DOSAGE FORM, QD (ONE TO BE TAKEN EACH DAY)
     Route: 065
     Dates: start: 20220202
  6. ATORVASTATIN [Concomitant]
     Active Substance: ATORVASTATIN
     Indication: Ill-defined disorder
     Dosage: 1 DOSAGE FORM, PM (ONE TO BE TAKEN AT NIGHT)
     Route: 065
     Dates: start: 20220725
  7. BISOPROLOL [Concomitant]
     Active Substance: BISOPROLOL\BISOPROLOL FUMARATE
     Indication: Ill-defined disorder
     Dosage: 1 DOSAGE FORM, QD (ONE TO BE TAKEN EACH DAY)
     Route: 065
     Dates: start: 20220725
  8. NITROGLYCERIN [Concomitant]
     Active Substance: NITROGLYCERIN
     Indication: Ill-defined disorder
     Dosage: UNK (SPRAY ONE OR TWO DOSES UNDER TONGUE AND THEN CL.)
     Route: 060
     Dates: start: 20220726
  9. OMEPRAZOLE [Concomitant]
     Active Substance: OMEPRAZOLE
     Indication: Ill-defined disorder
     Dosage: 1 DOSAGE FORM, QD (ONE TO BE TAKEN EACH DAY)
     Route: 065
     Dates: start: 20230118
  10. CANDESARTAN [Concomitant]
     Active Substance: CANDESARTAN
     Indication: Ill-defined disorder
     Dosage: 1 DOSAGE FORM, QD (ONE TO BE TAKEN EACH DAY)
     Route: 065
     Dates: start: 20230302
  11. TAMSULOSIN HYDROCHLORIDE [Concomitant]
     Active Substance: TAMSULOSIN HYDROCHLORIDE
     Indication: Ill-defined disorder
     Dosage: 1 DOSAGE FORM, QD (ONE TO BE TAKEN DAILY)
     Route: 065
     Dates: start: 20230412
  12. HYALURONATE SODIUM\TREHALOSE [Concomitant]
     Active Substance: HYALURONATE SODIUM\TREHALOSE
     Indication: Ill-defined disorder
     Dosage: UNK UNK, QID (FOUR TIMES A DAY TO BOTH EYES)
     Route: 065
     Dates: start: 20230928

REACTIONS (2)
  - Hypotension [Recovered/Resolved]
  - Pollakiuria [Unknown]
